FAERS Safety Report 10399988 (Version 1)
Quarter: 2014Q3

REPORT INFORMATION
  Report Type: Spontaneous
  Country: US (occurrence: US)
  Receive Date: 20140821
  Receipt Date: 20140821
  Transmission Date: 20150326
  Serious: Yes (Hospitalization)
  Sender: FDA-Public Use
  Company Number: US-B.I. PHARMACEUTICALS,INC./RIDGEFIELD-2014-BI-38198BP

PATIENT
  Age: 82 Year
  Sex: Male

DRUGS (2)
  1. ASPIRIN. [Suspect]
     Active Substance: ASPIRIN
     Indication: ANTICOAGULANT THERAPY
     Route: 065
     Dates: end: 20120114
  2. PRADAXA [Suspect]
     Active Substance: DABIGATRAN ETEXILATE MESYLATE
     Indication: ANTICOAGULANT THERAPY
     Route: 065
     Dates: end: 20120114

REACTIONS (3)
  - Gastrointestinal haemorrhage [Unknown]
  - Atrial fibrillation [Unknown]
  - Anaemia [Unknown]

NARRATIVE: CASE EVENT DATE: 20120113
